FAERS Safety Report 7066494-0 (Version None)
Quarter: 2010Q4

REPORT INFORMATION
  Report Type: 
  Country: None (occurrence: None)
  Receive Date: 20101027
  Receipt Date: 20100430
  Transmission Date: 20110411
  Serious: No
  Sender: FDA-Public Use
  Company Number: US-WYE-H14928410

PATIENT
  Sex: Female

DRUGS (1)
  1. PREMPRO [Suspect]

REACTIONS (8)
  - ABDOMINAL DISTENSION [None]
  - CHEST PAIN [None]
  - DIZZINESS [None]
  - HYPERTENSION [None]
  - PAIN IN EXTREMITY [None]
  - VAGINAL HAEMORRHAGE [None]
  - VISION BLURRED [None]
  - VOMITING [None]
